FAERS Safety Report 7523434-5 (Version None)
Quarter: 2011Q2

REPORT INFORMATION
  Report Type: 
  Country: None (occurrence: None)
  Receive Date: 20110601
  Receipt Date: 20110601
  Transmission Date: 20111010
  Serious: No
  Sender: FDA-Public Use
  Company Number: None

PATIENT
  Sex: Male
  Weight: 65.14 kg

DRUGS (3)
  1. CARBOPLATIN [Suspect]
     Dosage: 1230 MG
     Dates: end: 20101008
  2. ERBITUX [Suspect]
     Dosage: 2455 MG
     Dates: end: 20101015
  3. TAXOL [Suspect]
     Dosage: 410 MG
     Dates: end: 20101008

REACTIONS (6)
  - DECREASED APPETITE [None]
  - WEIGHT DECREASED [None]
  - NEUTROPHIL COUNT DECREASED [None]
  - ACTIVITIES OF DAILY LIVING IMPAIRED [None]
  - FATIGUE [None]
  - DYSPNOEA [None]
